FAERS Safety Report 19701231 (Version 1)
Quarter: 2021Q3

REPORT INFORMATION
  Report Type: Spontaneous
  Country: US (occurrence: US)
  Receive Date: 20210813
  Receipt Date: 20210813
  Transmission Date: 20211014
  Serious: Yes (Other)
  Sender: FDA-Public Use
  Company Number: US-009507513-2108USA003468

PATIENT
  Age: 54 Year
  Sex: Female

DRUGS (4)
  1. CUBICIN [Suspect]
     Active Substance: DAPTOMYCIN
     Indication: SKIN BACTERIAL INFECTION
     Dosage: 750 MILLIGRAM, QD
  2. CUBICIN [Interacting]
     Active Substance: DAPTOMYCIN
     Indication: STAPHYLOCOCCAL INFECTION
  3. ATORVASTATIN [Interacting]
     Active Substance: ATORVASTATIN
     Dosage: 80 MILLIGRAM, QD
  4. LEFLUNOMIDE. [Interacting]
     Active Substance: LEFLUNOMIDE
     Indication: PSORIATIC ARTHROPATHY
     Dosage: UNK

REACTIONS (4)
  - Rhabdomyolysis [Recovered/Resolved]
  - Incorrect dose administered [Unknown]
  - Drug interaction [Unknown]
  - Product use in unapproved indication [Unknown]
